FAERS Safety Report 5119515-6 (Version None)
Quarter: 2006Q4

REPORT INFORMATION
  Report Type: 
  Country: None (occurrence: None)
  Receive Date: 20061003
  Receipt Date: 20060925
  Transmission Date: 20070319
  Serious: Yes (Other)
  Sender: FDA-Public Use
  Company Number: US-BRISTOL-MYERS SQUIBB COMPANY-13520010

PATIENT
  Age: 56 Year
  Sex: Male

DRUGS (7)
  1. CYCLOPHOSPHAMIDE [Suspect]
     Indication: LYMPHOCYTIC LEUKAEMIA
  2. DOXORUBICIN [Suspect]
     Indication: LYMPHOCYTIC LEUKAEMIA
  3. METHOTREXATE [Suspect]
     Indication: LYMPHOCYTIC LEUKAEMIA
     Route: 050
  4. CYTARABINE [Suspect]
     Indication: LYMPHOCYTIC LEUKAEMIA
     Route: 050
  5. VINCRISTINE [Suspect]
     Indication: LYMPHOCYTIC LEUKAEMIA
  6. DEXAMETHASONE TAB [Suspect]
     Indication: LYMPHOCYTIC LEUKAEMIA
     Route: 048
  7. NELARABINE [Suspect]
     Indication: LYMPHOCYTIC LEUKAEMIA

REACTIONS (3)
  - CONFUSIONAL STATE [None]
  - HYPOMANIA [None]
  - LEUKOENCEPHALOPATHY [None]
